FAERS Safety Report 11216624 (Version 1)
Quarter: 2015Q2

REPORT INFORMATION
  Report Type: Spontaneous
  Country: US (occurrence: US)
  Receive Date: 20150624
  Receipt Date: 20150624
  Transmission Date: 20150821
  Serious: No
  Sender: FDA-Public Use
  Company Number: US-MYLANLABS-2014M1014573

PATIENT
  Sex: Male

DRUGS (1)
  1. OMEPRAZOLE DELAYED-RELEASE [Suspect]
     Active Substance: OMEPRAZOLE
     Dosage: UNK

REACTIONS (1)
  - Hypoglycaemia [Recovered/Resolved]
